FAERS Safety Report 13190646 (Version 2)
Quarter: 2017Q1

REPORT INFORMATION
  Report Type: Report from Study
  Country: US (occurrence: US)
  Receive Date: 20170206
  Receipt Date: 20170215
  Transmission Date: 20170428
  Serious: Yes (Death, Hospitalization)
  Sender: FDA-Public Use
  Company Number: US-ACTELION-A-US2015-122676

PATIENT
  Age: 51 Year
  Sex: Female
  Weight: 58.96 kg

DRUGS (2)
  1. VELETRI [Suspect]
     Active Substance: EPOPROSTENOL
     Indication: PULMONARY ARTERIAL HYPERTENSION
     Dosage: 27.54 NG/KG, PER MIN
     Route: 042
  2. VELETRI [Suspect]
     Active Substance: EPOPROSTENOL
     Dosage: 13.32 NG/KG, PER MIN
     Route: 042
     Dates: start: 20150529

REACTIONS (7)
  - Pulmonary arterial hypertension [Fatal]
  - Disease progression [Fatal]
  - Fluid overload [Recovered/Resolved]
  - Dyspnoea [Unknown]
  - Cardiac failure [Unknown]
  - Chest pain [Unknown]
  - Abdominal distension [Unknown]

NARRATIVE: CASE EVENT DATE: 20160725
